FAERS Safety Report 11392283 (Version 1)
Quarter: 2015Q3

REPORT INFORMATION
  Report Type: Spontaneous
  Country: US (occurrence: US)
  Receive Date: 20150818
  Receipt Date: 20150818
  Transmission Date: 20151125
  Serious: No
  Sender: FDA-Public Use
  Company Number: US-ACTELION PHARMACEUTICALS US, INC.-A-US2015-122446

PATIENT
  Age: 55 Year
  Sex: Female

DRUGS (13)
  1. FISH OIL [Concomitant]
     Active Substance: FISH OIL
  2. BYSTOLIC [Concomitant]
     Active Substance: NEBIVOLOL HYDROCHLORIDE
  3. ABILIFY [Concomitant]
     Active Substance: ARIPIPRAZOLE
  4. BUPROPION. [Concomitant]
     Active Substance: BUPROPION
  5. LIPITOR [Concomitant]
     Active Substance: ATORVASTATIN CALCIUM
  6. LOSARTAN. [Concomitant]
     Active Substance: LOSARTAN
  7. AMLODIPINE [Concomitant]
     Active Substance: AMLODIPINE BESYLATE
  8. ACYCLOVIR. [Concomitant]
     Active Substance: ACYCLOVIR
  9. PREMARIN [Concomitant]
     Active Substance: ESTROGENS, CONJUGATED
  10. CLONAZEPAM. [Concomitant]
     Active Substance: CLONAZEPAM
  11. LEVOMILNACIPRAN [Concomitant]
     Active Substance: LEVOMILNACIPRAN
  12. OMEPRAZOLE. [Concomitant]
     Active Substance: OMEPRAZOLE
  13. VALCHLOR [Suspect]
     Active Substance: MECHLORETHAMINE
     Indication: MYCOSIS FUNGOIDES
     Dosage: UNK
     Route: 061
     Dates: start: 201408

REACTIONS (2)
  - Skin reaction [Unknown]
  - Body height decreased [Unknown]
